FAERS Safety Report 8777349 (Version 1)
Quarter: 2012Q4

REPORT INFORMATION
  Report Type: 
  Country: US (occurrence: US)
  Receive Date: 20120911
  Receipt Date: 20120911
  Transmission Date: 20130627
  Serious: No
  Sender: FDA-Public Use
  Company Number: US-PFIZER INC-2012222762

PATIENT
  Age: 20 Year
  Sex: Female
  Weight: 55.78 kg

DRUGS (1)
  1. ADVIL [Suspect]
     Indication: HEADACHE
     Dosage: UNK
     Route: 048
     Dates: end: 201209

REACTIONS (2)
  - Overdose [Unknown]
  - Abdominal pain upper [Not Recovered/Not Resolved]
